FAERS Safety Report 6331569-8 (Version None)
Quarter: 2009Q3

REPORT INFORMATION
  Report Type: 
  Country: None (occurrence: None)
  Receive Date: 20090827
  Receipt Date: 20090409
  Transmission Date: 20100115
  Serious: Yes (Other)
  Sender: FDA-Public Use
  Company Number: US-BAYER-200920170NA

PATIENT
  Age: 45 Year
  Sex: Female
  Weight: 136 kg

DRUGS (13)
  1. MAGNEVIST [Suspect]
     Indication: DRUG USE FOR UNKNOWN INDICATION
  2. GADOLINIUM [Suspect]
     Indication: ANGIOGRAM
     Dates: start: 20070719, end: 20070719
  3. ACTOS [Concomitant]
  4. PREVACID [Concomitant]
  5. CLONAZEPAM [Concomitant]
  6. DOXEPIN HCL [Concomitant]
  7. VERAPAMIL [Concomitant]
  8. PLAVIX [Concomitant]
  9. ASPIRIN [Concomitant]
  10. VICODIN [Concomitant]
  11. ACCOLATE [Concomitant]
  12. OMNIPAQUE 350 [Concomitant]
     Indication: COMPUTERISED TOMOGRAM THORAX
     Dosage: TOTAL DAILY DOSE: 75 ML
     Route: 042
     Dates: start: 20061108, end: 20061108
  13. OMNIPAQUE 350 [Concomitant]
     Dosage: AS USED: 75 ML
     Route: 042
     Dates: start: 20070611, end: 20070611

REACTIONS (7)
  - EXFOLIATIVE RASH [None]
  - HYPOAESTHESIA [None]
  - NEPHROGENIC SYSTEMIC FIBROSIS [None]
  - PAIN IN EXTREMITY [None]
  - PARAESTHESIA [None]
  - RASH ERYTHEMATOUS [None]
  - RASH MACULO-PAPULAR [None]
